FAERS Safety Report 7946929-9 (Version None)
Quarter: 2011Q4

REPORT INFORMATION
  Report Type: 
  Country: None (occurrence: None)
  Receive Date: 20111129
  Receipt Date: 20111116
  Transmission Date: 20120403
  Serious: Yes (Other)
  Sender: FDA-Public Use
  Company Number: GB-ASTRAZENECA-2011SE69376

PATIENT
  Age: 68 Year
  Sex: Male
  Weight: 87.5 kg

DRUGS (20)
  1. OXYTETRACYCLINE [Concomitant]
  2. WARFARIN SODIUM [Concomitant]
     Indication: ANTICOAGULANT THERAPY
  3. VALSARTAN [Concomitant]
     Indication: HYPERTENSION
  4. BETNOVATE [Concomitant]
  5. DULOXETINE HYDROCHLORIDE [Concomitant]
  6. THIAMINE HCL [Concomitant]
  7. DOXAZOSIN MESYLATE [Concomitant]
  8. PREDNISOLONE [Concomitant]
  9. EPLERENONE [Concomitant]
     Indication: DIURETIC THERAPY
  10. TIOPRONIN [Concomitant]
     Dosage: 5 UG ONCE A DAY
     Route: 055
  11. ROSUVASTATIN [Suspect]
     Indication: BLOOD CHOLESTEROL INCREASED
     Route: 048
     Dates: start: 20111017, end: 20111024
  12. ALLOPURINOL [Concomitant]
     Indication: GOUT
  13. VENTOLIN [Concomitant]
     Dosage: 200 UG AS NECESSARY
     Route: 055
  14. ATORVASTATIN [Concomitant]
     Indication: BLOOD CHOLESTEROL INCREASED
  15. COAL TAR [Concomitant]
  16. FUROSEMIDE [Concomitant]
  17. MONTELUKAST SODIUM [Concomitant]
  18. GLICLAZIDE [Concomitant]
     Indication: DIABETES MELLITUS
  19. QVAR 40 [Concomitant]
     Dosage: 100 UG TWO TIMES A DAY
     Route: 055
  20. FLUTICASONE PROPIONATE/SALMETEROL [Concomitant]
     Route: 055

REACTIONS (3)
  - FLUID RETENTION [None]
  - OEDEMA PERIPHERAL [None]
  - WHEEZING [None]
